FAERS Safety Report 9633043 (Version 2)
Quarter: 2014Q1

REPORT INFORMATION
  Report Type: Report from Study
  Country: DE (occurrence: DE)
  Receive Date: 20131018
  Receipt Date: 20140321
  Transmission Date: 20141002
  Serious: Yes (Death, Hospitalization, Other)
  Sender: FDA-Public Use
  Company Number: DE-ABBVIE-13P-062-1158536-00

PATIENT
  Age: 74 Year
  Sex: Female
  Weight: 80.5 kg

DRUGS (12)
  1. ZEMPLAR [Suspect]
     Indication: HYPERPARATHYROIDISM SECONDARY
     Dates: end: 20130221
  2. ZEMPLAR [Suspect]
     Route: 048
     Dates: start: 20130221
  3. AMLODIPIN [Concomitant]
     Indication: PRODUCT USED FOR UNKNOWN INDICATION
  4. METOPROLOL [Concomitant]
     Indication: PRODUCT USED FOR UNKNOWN INDICATION
  5. BONDIOL [Concomitant]
     Indication: PRODUCT USED FOR UNKNOWN INDICATION
  6. GLURENORM [Concomitant]
     Indication: PRODUCT USED FOR UNKNOWN INDICATION
  7. MIMPARA [Concomitant]
     Indication: PRODUCT USED FOR UNKNOWN INDICATION
  8. FUROSEMID [Concomitant]
     Indication: PRODUCT USED FOR UNKNOWN INDICATION
  9. MELPERON [Concomitant]
     Indication: PRODUCT USED FOR UNKNOWN INDICATION
  10. ASPIRINE [Concomitant]
     Indication: PRODUCT USED FOR UNKNOWN INDICATION
  11. OMEPRAZOL [Concomitant]
     Indication: PRODUCT USED FOR UNKNOWN INDICATION
  12. HEPARIN [Concomitant]
     Indication: PRODUCT USED FOR UNKNOWN INDICATION
     Dates: start: 201305

REACTIONS (16)
  - Sepsis [Fatal]
  - Pneumonia [Fatal]
  - Respiratory failure [Fatal]
  - Cardiac failure [Fatal]
  - Shunt stenosis [Recovered/Resolved]
  - Fall [Recovered/Resolved]
  - Peripheral arterial occlusive disease [Recovered/Resolved]
  - Skin necrosis [Recovered/Resolved]
  - Renal cell carcinoma [Not Recovered/Not Resolved]
  - Impaired healing [Not Recovered/Not Resolved]
  - Wound dehiscence [Unknown]
  - Purulent discharge [Unknown]
  - Shunt malfunction [Recovered/Resolved]
  - General physical health deterioration [Unknown]
  - Urosepsis [Unknown]
  - Pathogen resistance [Unknown]
